FAERS Safety Report 9503199 (Version 3)
Quarter: 2014Q2

REPORT INFORMATION
  Report Type: Spontaneous
  Country: US (occurrence: US)
  Receive Date: 20130906
  Receipt Date: 20140514
  Transmission Date: 20141212
  Serious: No
  Sender: FDA-Public Use
  Company Number: US-PFIZER INC-2013256225

PATIENT
  Age: 60 Year
  Sex: Male

DRUGS (5)
  1. NEURONTIN [Suspect]
     Dosage: UNK
  2. CYMBALTA [Suspect]
     Dosage: UNK
  3. TEGRETOL [Suspect]
     Dosage: UNK
  4. CATAFLAM [Suspect]
     Dosage: UNK
  5. ZYRTEC [Suspect]
     Dosage: UNK

REACTIONS (1)
  - Drug hypersensitivity [Unknown]
